FAERS Safety Report 9060745 (Version 2)
Quarter: 2014Q1

REPORT INFORMATION
  Report Type: Report from Study
  Country: BE (occurrence: BE)
  Receive Date: 20130204
  Receipt Date: 20140111
  Transmission Date: 20141002
  Serious: Yes (Death, Hospitalization)
  Sender: FDA-Public Use
  Company Number: BE-ROCHE-1186447

PATIENT
  Age: 81 Year
  Sex: Male

DRUGS (9)
  1. BEVACIZUMAB [Suspect]
     Indication: COLON CANCER
     Route: 065
  2. LEUCOVORIN [Suspect]
     Indication: PRODUCT USED FOR UNKNOWN INDICATION
     Route: 065
  3. FLUOROURACIL [Suspect]
     Indication: PRODUCT USED FOR UNKNOWN INDICATION
     Route: 065
  4. IRINOTECAN [Suspect]
     Indication: PRODUCT USED FOR UNKNOWN INDICATION
     Route: 065
  5. INSULIN [Concomitant]
     Indication: DIABETES MELLITUS
  6. TRITACE [Concomitant]
     Indication: HYPERTENSION
     Route: 048
  7. ASAFLOW [Concomitant]
     Route: 048
  8. CREON [Concomitant]
     Indication: PANCREATIC INSUFFICIENCY
     Route: 048
  9. ACTRAPID [Concomitant]
     Indication: DIABETES MELLITUS
     Route: 058

REACTIONS (2)
  - Death [Fatal]
  - Pneumonia [Recovered/Resolved]
